FAERS Safety Report 9020995 (Version 1)
Quarter: 2013Q1

REPORT INFORMATION
  Report Type: Spontaneous
  Country: US (occurrence: US)
  Receive Date: 20130119
  Receipt Date: 20130119
  Transmission Date: 20140127
  Serious: No
  Sender: FDA-Public Use
  Company Number: US-ALLERGAN-1203618US

PATIENT
  Age: 43 None
  Sex: Female

DRUGS (4)
  1. BOTOX COSMETIC [Suspect]
     Indication: SKIN WRINKLING
     Dosage: 20 UNITS, SINGLE
     Route: 030
     Dates: start: 20110909, end: 20110909
  2. BOTOX COSMETIC [Suspect]
     Indication: SKIN WRINKLING
  3. RADIESSE [Concomitant]
     Indication: PRODUCT USED FOR UNKNOWN INDICATION
     Dosage: UNK
     Route: 030
     Dates: start: 20110909, end: 20110909
  4. JUVEDERM ULTRA PLUS [Concomitant]
     Indication: PRODUCT USED FOR UNKNOWN INDICATION
     Dosage: UNK
     Route: 030
     Dates: start: 20110909, end: 20110909

REACTIONS (9)
  - Palpitations [Not Recovered/Not Resolved]
  - Fatigue [Not Recovered/Not Resolved]
  - Rhinorrhoea [Recovered/Resolved]
  - Back pain [Recovered/Resolved]
  - Asthenia [Not Recovered/Not Resolved]
  - Neck pain [Recovered/Resolved]
  - Dyspnoea [Not Recovered/Not Resolved]
  - Headache [Recovered/Resolved]
  - Dry mouth [Recovered/Resolved]
